FAERS Safety Report 19447248 (Version 1)
Quarter: 2021Q2

REPORT INFORMATION
  Report Type: Other
  Country: BG (occurrence: BG)
  Receive Date: 20210622
  Receipt Date: 20210622
  Transmission Date: 20210717
  Serious: Yes (Hospitalization, Other)
  Sender: FDA-Public Use
  Company Number: BG-INVENTIA-000103

PATIENT
  Age: 87 Year

DRUGS (2)
  1. TELMISARTAN. [Suspect]
     Active Substance: TELMISARTAN
     Indication: HYPERTENSION
     Dosage: 80 MG (1?0?0) (MADE BY AN UNSPECIFIED PHARMACEUTICAL COMPANY).
  2. AMLODIPINE [Concomitant]
     Active Substance: AMLODIPINE BESYLATE
     Indication: HYPERTENSION
     Dosage: 5 MG ONCE DAILY.

REACTIONS (2)
  - Tumour embolism [Unknown]
  - Metastatic malignant melanoma [Unknown]
